FAERS Safety Report 6090940-2 (Version None)
Quarter: 2009Q1

REPORT INFORMATION
  Report Type: 
  Country: None (occurrence: None)
  Receive Date: 20090220
  Receipt Date: 20090211
  Transmission Date: 20090719
  Serious: Yes (Hospitalization, Disabling, Other)
  Sender: FDA-Public Use
  Company Number: 07-001014

PATIENT
  Age: 21 Year
  Sex: Female
  Weight: 67.1 kg

DRUGS (4)
  1. OVCON-35 [Suspect]
     Indication: OVARIAN CYST
     Dosage: 35/400 UG QD, ORAL
     Route: 048
     Dates: start: 20050602, end: 20050914
  2. NORTRIPTYLINE HCL [Concomitant]
  3. PLAVIX [Concomitant]
  4. ASPIRIN [Concomitant]

REACTIONS (14)
  - ACTIVATED PARTIAL THROMBOPLASTIN TIME PROLONGED [None]
  - ANTIPHOSPHOLIPID SYNDROME [None]
  - AORTIC VALVE INCOMPETENCE [None]
  - BLOOD PRESSURE INCREASED [None]
  - CEREBRAL ARTERY OCCLUSION [None]
  - CEREBRAL INFARCTION [None]
  - ESCHERICHIA URINARY TRACT INFECTION [None]
  - GRAND MAL CONVULSION [None]
  - METRORRHAGIA [None]
  - MITRAL VALVE INCOMPETENCE [None]
  - PITUITARY ENLARGEMENT [None]
  - PROTEIN S DEFICIENCY [None]
  - REFUSAL OF TREATMENT BY PATIENT [None]
  - TRICUSPID VALVE INCOMPETENCE [None]
